FAERS Safety Report 6006516-9 (Version None)
Quarter: 2008Q4

REPORT INFORMATION
  Report Type: 
  Country: None (occurrence: None)
  Receive Date: 20081217
  Receipt Date: 20070501
  Transmission Date: 20090506
  Serious: Yes (Other)
  Sender: FDA-Public Use
  Company Number: US-BAXTER-2008BH010419

PATIENT

DRUGS (12)
  1. POLYGAM S/D [Suspect]
     Indication: PRIMARY IMMUNODEFICIENCY SYNDROME
     Dosage: DOSE UNIT:UNKNOWN
     Route: 042
  2. POLYGAM S/D [Suspect]
     Indication: IMMUNODEFICIENCY COMMON VARIABLE
     Dosage: DOSE UNIT:UNKNOWN
     Route: 042
  3. VENOGLOBULIN [Suspect]
     Indication: PRIMARY IMMUNODEFICIENCY SYNDROME
     Dosage: DOSE UNIT:UNKNOWN
     Route: 042
  4. VENOGLOBULIN [Suspect]
     Indication: IMMUNODEFICIENCY COMMON VARIABLE
     Dosage: DOSE UNIT:UNKNOWN
     Route: 042
  5. GAMUNEX [Suspect]
     Indication: PRIMARY IMMUNODEFICIENCY SYNDROME
     Dosage: DOSE UNIT:UNKNOWN
     Route: 042
  6. GAMUNEX [Suspect]
     Indication: IMMUNODEFICIENCY COMMON VARIABLE
     Dosage: DOSE UNIT:UNKNOWN
     Route: 042
  7. CARIMUNE NF [Suspect]
     Indication: PRIMARY IMMUNODEFICIENCY SYNDROME
     Dosage: DOSE UNIT:UNKNOWN
     Route: 042
  8. CARIMUNE NF [Suspect]
     Indication: IMMUNODEFICIENCY COMMON VARIABLE
     Dosage: DOSE UNIT:UNKNOWN
     Route: 042
  9. PANGLOBULIN [Suspect]
     Indication: PRIMARY IMMUNODEFICIENCY SYNDROME
     Dosage: DOSE UNIT:UNKNOWN
     Route: 042
  10. PANGLOBULIN [Suspect]
     Indication: IMMUNODEFICIENCY COMMON VARIABLE
     Dosage: DOSE UNIT:UNKNOWN
     Route: 042
  11. ACETAMINOPHEN [Concomitant]
     Indication: PREMEDICATION
     Route: 065
  12. DIPHENHYDRAMINE HCL [Concomitant]
     Indication: PREMEDICATION
     Route: 065

REACTIONS (2)
  - ANAPHYLACTOID REACTION [None]
  - DRUG INTOLERANCE [None]
